FAERS Safety Report 6174353-0 (Version None)
Quarter: 2009Q2

REPORT INFORMATION
  Report Type: 
  Country: None (occurrence: None)
  Receive Date: 20090430
  Receipt Date: 20090222
  Transmission Date: 20091009
  Serious: No
  Sender: FDA-Public Use
  Company Number: US-BAYER-200910679BCC

PATIENT
  Sex: Female

DRUGS (1)
  1. ALEVE [Suspect]
     Indication: SINUS HEADACHE
     Dosage: AS USED: 220 MG  UNIT DOSE: 220 MG
     Dates: start: 20090222

REACTIONS (1)
  - VOMITING [None]
